FAERS Safety Report 19769407 (Version 1)
Quarter: 2021Q3

REPORT INFORMATION
  Report Type: Spontaneous
  Country: US (occurrence: US)
  Receive Date: 20210827
  Receipt Date: 20210827
  Transmission Date: 20211014
  Serious: Yes (Other)
  Sender: FDA-Public Use
  Company Number: None

PATIENT
  Age: 62 Year
  Sex: Female

DRUGS (1)
  1. AJOVY [Suspect]
     Active Substance: FREMANEZUMAB-VFRM
     Indication: MIGRAINE WITHOUT AURA
     Dosage: ?          OTHER STRENGTH:225MG/1.5M;?
     Route: 058
     Dates: start: 20190215

REACTIONS (4)
  - Incorrect dose administered [None]
  - Syringe issue [None]
  - Device malfunction [None]
  - Accidental exposure to product [None]

NARRATIVE: CASE EVENT DATE: 202105
